FAERS Safety Report 4269702-4 (Version None)
Quarter: 2004Q1

REPORT INFORMATION
  Report Type: 
  Country: None (occurrence: None)
  Receive Date: 20040112
  Receipt Date: 20040105
  Transmission Date: 20041129
  Serious: Yes (Death, Hospitalization, Other)
  Sender: FDA-Public Use
  Company Number: 2003-10-2945

PATIENT
  Age: 24 Year
  Sex: Female

DRUGS (7)
  1. TEMODAR [Suspect]
     Indication: GLIOBLASTOMA MULTIFORME
     Dosage: SEE IMAGE
     Route: 048
     Dates: start: 20020304
  2. TEMODAR [Suspect]
     Indication: GLIOBLASTOMA MULTIFORME
     Dosage: SEE IMAGE
     Route: 048
     Dates: start: 20021007
  3. TEMODAR [Suspect]
     Indication: GLIOBLASTOMA MULTIFORME
     Dosage: SEE IMAGE
     Route: 048
     Dates: start: 20030421
  4. TEMODAR [Suspect]
     Indication: GLIOBLASTOMA MULTIFORME
     Dosage: SEE IMAGE
     Route: 048
     Dates: start: 20030714
  5. RADIATION THERAPY [Suspect]
     Indication: GLIOBLASTOMA MULTIFORME
     Dosage: 6000 CGY X-RAY THERAPY
     Dates: start: 20020305, end: 20020422
  6. DECADRON [Concomitant]
  7. DILANTIN [Concomitant]

REACTIONS (10)
  - DYSPHAGIA [None]
  - GLIOBLASTOMA MULTIFORME [None]
  - HOARSENESS [None]
  - MASS [None]
  - METASTASES TO LUNG [None]
  - NAUSEA [None]
  - NECROSIS [None]
  - NEOPLASM PROGRESSION [None]
  - PRECURSOR B-LYMPHOBLASTIC LYMPHOMA [None]
  - VOMITING [None]
